FAERS Safety Report 4367690-3 (Version None)
Quarter: 2004Q2

REPORT INFORMATION
  Report Type: 
  Country: None (occurrence: None)
  Receive Date: 20040526
  Receipt Date: 20040309
  Transmission Date: 20050107
  Serious: No
  Sender: FDA-Public Use
  Company Number: 2004US002046

PATIENT
  Age: 47 Year
  Sex: Female
  Weight: 61.2 kg

DRUGS (5)
  1. ALOXI [Suspect]
     Indication: PROPHYLAXIS OF NAUSEA AND VOMITING
     Dosage: 0.25 MG, SINGLE, INTRAVENOUS
     Route: 042
     Dates: start: 20040107, end: 20040107
  2. PACLITAXEL [Suspect]
     Indication: BREAST CANCER
     Dates: start: 20040107, end: 20040107
  3. BENADRYL ^WARNER-LAMBERT^ (DIPHENHYDRAMINE HYDROCHLORIDE) [Concomitant]
  4. HEXADROL (DEXAMETHASONE) [Concomitant]
  5. ZANTAC [Concomitant]

REACTIONS (3)
  - DYSPNOEA [None]
  - ERYTHEMA [None]
  - SWELLING FACE [None]
